FAERS Safety Report 9448295 (Version 1)
Quarter: 2013Q3

REPORT INFORMATION
  Report Type: Spontaneous
  Country: JP (occurrence: JP)
  Receive Date: 20130808
  Receipt Date: 20130808
  Transmission Date: 20140515
  Serious: Yes (Hospitalization)
  Sender: FDA-Public Use
  Company Number: JP-EISAI INC-E2090-02790-SPO-JP

PATIENT
  Age: 63 Year
  Sex: Female
  Weight: 71 kg

DRUGS (3)
  1. EXCEGRAN [Suspect]
     Indication: CONVULSION PROPHYLAXIS
     Dosage: UNKNOWN
     Route: 048
     Dates: start: 20130319, end: 20130603
  2. GLIADEL [Concomitant]
     Indication: MALIGNANT GLIOMA
     Dates: start: 20130326
  3. TEMODAL [Concomitant]
     Indication: MALIGNANT GLIOMA
     Route: 048
     Dates: start: 20130408, end: 20130519

REACTIONS (1)
  - Rash [Recovered/Resolved]
